FAERS Safety Report 8584706-9 (Version None)
Quarter: 2012Q3

REPORT INFORMATION
  Report Type: 
  Country: None (occurrence: None)
  Receive Date: 20120810
  Receipt Date: 20120731
  Transmission Date: 20120928
  Serious: Yes (Other)
  Sender: FDA-Public Use
  Company Number: US-BAYER-2012-079009

PATIENT
  Age: 27 Year
  Sex: Female

DRUGS (7)
  1. YASMIN [Suspect]
     Indication: CONTRACEPTION
  2. DILAUDID [Concomitant]
  3. CAFFEINE CITRATE [Concomitant]
     Dosage: 500 MG, UNK
  4. BENADRYL [Concomitant]
     Dosage: 25 MG, UNK
  5. COMPAZINE [Concomitant]
     Dosage: 5 MG, UNK
  6. YASMIN [Suspect]
     Indication: ACNE
  7. DROSPIRENONE AND ETHINYL ESTRADIOL [Suspect]

REACTIONS (1)
  - TRANSIENT ISCHAEMIC ATTACK [None]
